FAERS Safety Report 8392318-5 (Version None)
Quarter: 2012Q2

REPORT INFORMATION
  Report Type: 
  Country: None (occurrence: None)
  Receive Date: 20120529
  Receipt Date: 20120524
  Transmission Date: 20120825
  Serious: Yes (Death)
  Sender: FDA-Public Use
  Company Number: US-ELI_LILLY_AND_COMPANY-US201205008798

PATIENT
  Age: 62 Year
  Sex: Male

DRUGS (4)
  1. NEULASTIM [Concomitant]
     Dosage: 6 MG, UNK
  2. ALIMTA [Suspect]
     Indication: LUNG CARCINOMA CELL TYPE UNSPECIFIED STAGE IV
     Dosage: 1200 MG, UNK
     Dates: start: 20120517
  3. CARBOPLATIN [Concomitant]
     Indication: LUNG NEOPLASM MALIGNANT
     Dosage: 600 MG, UNK
  4. XGEVA [Concomitant]
     Dosage: 120 MG, UNK

REACTIONS (1)
  - GASTROINTESTINAL HAEMORRHAGE [None]
